FAERS Safety Report 24343349 (Version 1)
Quarter: 2024Q3

REPORT INFORMATION
  Report Type: Spontaneous
  Country: EG (occurrence: EG)
  Receive Date: 20240920
  Receipt Date: 20240920
  Transmission Date: 20241017
  Serious: Yes (Hospitalization)
  Sender: MYLAN
  Company Number: EG-MYLANLABS-2024M1084671

PATIENT
  Age: 8 Day
  Sex: Female
  Weight: 2.5 kg

DRUGS (3)
  1. LUSTRAL [Suspect]
     Active Substance: SERTRALINE HYDROCHLORIDE
     Indication: Depression
     Dosage: 50 MILLIGRAM, QD
     Route: 064
  2. ESCITALOPRAM [Suspect]
     Active Substance: ESCITALOPRAM OXALATE
     Indication: Depression
     Dosage: 20 MILLIGRAM, QD (1 TIMES DAILY)
     Route: 064
  3. AMIKACIN [Concomitant]
     Active Substance: AMIKACIN
     Dosage: UNK
     Route: 065

REACTIONS (3)
  - Hypotonia [Not Recovered/Not Resolved]
  - Floppy infant [Not Recovered/Not Resolved]
  - Foetal exposure during pregnancy [Unknown]
